FAERS Safety Report 23404748 (Version 1)
Quarter: 2024Q1

REPORT INFORMATION
  Report Type: Spontaneous
  Country: CN (occurrence: CN)
  Receive Date: 20240116
  Receipt Date: 20240116
  Transmission Date: 20240410
  Serious: Yes (Other)
  Sender: FDA-Public Use
  Company Number: CN-PFIZER INC-PV202400002249

PATIENT
  Age: 26 Year
  Sex: Female
  Weight: 56 kg

DRUGS (1)
  1. METHOTREXATE SODIUM [Suspect]
     Active Substance: METHOTREXATE SODIUM
     Indication: Benign hydatidiform mole
     Dosage: 22 MG, DAILY (0.392 MG/(KG.D))
     Route: 030
     Dates: start: 20210915, end: 20210920

REACTIONS (16)
  - Myelosuppression [Recovering/Resolving]
  - Stomatitis [Recovering/Resolving]
  - Hepatic function abnormal [Recovering/Resolving]
  - White blood cell count decreased [Recovering/Resolving]
  - Neutrophil count decreased [Recovering/Resolving]
  - Nausea [Recovering/Resolving]
  - Vomiting [Recovering/Resolving]
  - Lip swelling [Recovering/Resolving]
  - Lip dry [Recovering/Resolving]
  - Mouth ulceration [Recovering/Resolving]
  - Lip haemorrhage [Recovering/Resolving]
  - Mucosal ulceration [Recovering/Resolving]
  - Oral pain [Recovering/Resolving]
  - Wound haemorrhage [Recovering/Resolving]
  - Dysuria [Recovering/Resolving]
  - Platelet count decreased [Recovering/Resolving]

NARRATIVE: CASE EVENT DATE: 20210901
